FAERS Safety Report 4742880-6 (Version None)
Quarter: 2005Q3

REPORT INFORMATION
  Report Type: 
  Country: None (occurrence: None)
  Receive Date: 20050811
  Receipt Date: 20050805
  Transmission Date: 20060218
  Serious: Yes (Hospitalization)
  Sender: FDA-Public Use
  Company Number: PHBS2005KR11463

PATIENT
  Age: 49 Year
  Sex: Male
  Weight: 80 kg

DRUGS (9)
  1. VALPROIC ACID [Suspect]
     Indication: SCHIZOAFFECTIVE DISORDER
     Dosage: 2 G/D
     Route: 048
  2. VALPROIC ACID [Suspect]
     Dosage: 1.5 G/D
     Route: 048
  3. VALPROIC ACID [Suspect]
     Dosage: 1.5 G/D
     Route: 048
  4. RISPERIDONE [Suspect]
     Dosage: 2 MG/D
  5. RISPERIDONE [Suspect]
     Dosage: 8 MG/D
  6. AMISULPRIDE [Concomitant]
     Dosage: 400 MG, BID
  7. ZOLPIDEM [Concomitant]
     Dosage: 10 MG, QHS
  8. BENZTROPINE MESYLATE [Concomitant]
     Dosage: 1 MG, QD
  9. THIORIDAZINE [Suspect]
     Dosage: 100 MG/D

REACTIONS (3)
  - DELIRIUM [None]
  - MANIA [None]
  - PANCYTOPENIA [None]
